FAERS Safety Report 5652452-7 (Version None)
Quarter: 2008Q1

REPORT INFORMATION
  Report Type: 
  Country: None (occurrence: None)
  Receive Date: 20080306
  Receipt Date: 20080225
  Transmission Date: 20080703
  Serious: Yes (Life-Threatening, Hospitalization)
  Sender: FDA-Public Use
  Company Number: JP-BRACCO-000001

PATIENT
  Age: 57 Year
  Sex: Female

DRUGS (8)
  1. IOPAMIRON [Suspect]
     Indication: ARTERIOGRAM CORONARY
     Route: 013
     Dates: start: 20071207, end: 20071207
  2. IOPAMIRON [Suspect]
     Indication: ANGINA PECTORIS
     Route: 013
     Dates: start: 20071207, end: 20071207
  3. METHYLPREDNISOLONE SODIUM SUCCINATE [Concomitant]
     Route: 042
     Dates: start: 20071207, end: 20071207
  4. ATROPINE SULFATE [Concomitant]
     Dosage: 1/2 AMPULE
     Route: 042
     Dates: start: 20071207, end: 20071207
  5. ADRENALIN                          /00003901/ [Concomitant]
     Dosage: 1 AMPULE
     Route: 042
     Dates: start: 20071207, end: 20071207
  6. PROTAMINE SULFATE [Suspect]
     Route: 042
     Dates: start: 20071207
  7. HEPARIN SODIUM [Concomitant]
  8. HEPARIN [Concomitant]
     Route: 065
     Dates: start: 20071207

REACTIONS (8)
  - BLOOD PRESSURE DECREASED [None]
  - BURNING SENSATION [None]
  - DYSPNOEA [None]
  - HEART RATE DECREASED [None]
  - LOSS OF CONSCIOUSNESS [None]
  - NAUSEA [None]
  - SHOCK [None]
  - SHUNT OCCLUSION [None]
